FAERS Safety Report 6852452-5 (Version None)
Quarter: 2010Q3

REPORT INFORMATION
  Report Type: 
  Country: None (occurrence: None)
  Receive Date: 20100717
  Receipt Date: 20071114
  Transmission Date: 20110219
  Serious: Yes (Other)
  Sender: FDA-Public Use
  Company Number: US-PFIZER INC-2007097385

PATIENT
  Sex: Female
  Weight: 47.727 kg

DRUGS (4)
  1. CHANTIX [Suspect]
     Indication: SMOKING CESSATION THERAPY
     Dates: start: 20070901
  2. ADVAIR DISKUS 100/50 [Concomitant]
     Indication: DYSPNOEA
     Route: 055
  3. SPIRIVA [Concomitant]
  4. ALBUTEROL [Concomitant]

REACTIONS (1)
  - GASTROINTESTINAL HAEMORRHAGE [None]
